FAERS Safety Report 14250608 (Version 1)
Quarter: 2017Q4

REPORT INFORMATION
  Report Type: Spontaneous
  Country: US (occurrence: None)
  Receive Date: 20171205
  Receipt Date: 20171205
  Transmission Date: 20180321
  Serious: No
  Sender: FDA-Public Use
  Company Number: None

PATIENT
  Age: 36 Year
  Sex: Female

DRUGS (1)
  1. MYOBLOC [Suspect]
     Active Substance: RIMABOTULINUMTOXINB
     Indication: MULTIPLE SCLEROSIS
     Dosage: 12,500 UNITS,  90 DAYS
     Dates: start: 20170801, end: 20171107

REACTIONS (1)
  - Limb discomfort [None]

NARRATIVE: CASE EVENT DATE: 20171107
